FAERS Safety Report 19135650 (Version 1)
Quarter: 2021Q2

REPORT INFORMATION
  Report Type: Report from Study
  Country: US (occurrence: US)
  Receive Date: 20210414
  Receipt Date: 20210414
  Transmission Date: 20210717
  Serious: Yes (Death)
  Sender: FDA-Public Use
  Company Number: US-ASTRAZENECA-2021A289990

PATIENT
  Age: 25402 Day
  Sex: Male
  Weight: 100.9 kg

DRUGS (10)
  1. CALQUENCE [Suspect]
     Active Substance: ACALABRUTINIB
     Indication: CHRONIC LYMPHOCYTIC LEUKAEMIA
     Route: 048
     Dates: start: 20200724, end: 20210409
  2. ATORVASTATIN [Concomitant]
     Active Substance: ATORVASTATIN
  3. LISINOPRIL. [Concomitant]
     Active Substance: LISINOPRIL
  4. COD LIVER OIL [Concomitant]
     Active Substance: COD LIVER OIL
  5. VITAMIN D [Concomitant]
     Active Substance: VITAMIN D NOS
  6. PIOGLITAZONE. [Concomitant]
     Active Substance: PIOGLITAZONE
  7. EZETIMIBE?SIMVASTATIN [Concomitant]
     Active Substance: EZETIMIBE\SIMVASTATIN
  8. MEGA BIOTIN [Concomitant]
  9. VITAMIN A [Concomitant]
     Active Substance: VITAMIN A
  10. POTASSIUM CITRATE. [Concomitant]
     Active Substance: POTASSIUM CITRATE

REACTIONS (1)
  - Death [Fatal]

NARRATIVE: CASE EVENT DATE: 20210409
